FAERS Safety Report 5633999-6 (Version None)
Quarter: 2008Q1

REPORT INFORMATION
  Report Type: 
  Country: None (occurrence: None)
  Receive Date: 20080221
  Receipt Date: 20080212
  Transmission Date: 20080703
  Serious: Yes (Hospitalization)
  Sender: FDA-Public Use
  Company Number: US-MERCK-0802USA03158

PATIENT
  Age: 15 Year
  Sex: Male

DRUGS (2)
  1. SINGULAIR [Suspect]
     Indication: HYPERSENSITIVITY
     Route: 048
     Dates: start: 20070101
  2. NONSTEROIDAL ANTI-INFLAMMATORY DRUG (UNSPECIFIED) [Concomitant]
     Route: 065

REACTIONS (3)
  - MIGRAINE [None]
  - NAUSEA [None]
  - VOMITING [None]
